FAERS Safety Report 9943402 (Version 2)
Quarter: 2014Q1

REPORT INFORMATION
  Report Type: Spontaneous
  Country: JP (occurrence: JP)
  Receive Date: 20140303
  Receipt Date: 20140324
  Transmission Date: 20141002
  Serious: Yes (Other)
  Sender: FDA-Public Use
  Company Number: JP-B.I. PHARMACEUTICALS,INC./RIDGEFIELD-2014-BI-08621NB

PATIENT
  Sex: Male
  Weight: 50 kg

DRUGS (4)
  1. PRAZAXA [Suspect]
     Indication: MITRAL VALVE STENOSIS
     Dosage: 220 MG
     Route: 048
     Dates: start: 20130527, end: 20130530
  2. LASIX / FUROSEMIDE [Concomitant]
     Dosage: 20 MG
     Route: 048
  3. ALDACTONE A / SPIRONOLACTONE [Concomitant]
     Dosage: 25 MG
     Route: 048
  4. MUCOSTA / REBAMIPIDE [Concomitant]
     Indication: PROPHYLAXIS
     Dosage: 200 MG
     Route: 048
     Dates: start: 20130527, end: 20130530

REACTIONS (2)
  - Cardiac failure congestive [Unknown]
  - Off label use [Unknown]
